FAERS Safety Report 16643500 (Version 1)
Quarter: 2019Q3

REPORT INFORMATION
  Report Type: Other
  Country: US (occurrence: US)
  Receive Date: 20190729
  Receipt Date: 20190729
  Transmission Date: 20191004
  Serious: No
  Sender: FDA-Public Use
  Company Number: US-PRINSTON PHARMACEUTICAL INC.-2019PRN00231

PATIENT
  Age: 80 Year
  Sex: Female
  Weight: 45.35 kg

DRUGS (7)
  1. VITAMIN B [Concomitant]
     Active Substance: VITAMIN B
  2. VITAMIN D [Concomitant]
     Active Substance: VITAMIN D NOS
  3. CLONAZEPAM. [Suspect]
     Active Substance: CLONAZEPAM
     Indication: NEUROPATHY PERIPHERAL
     Dosage: 1/3, 1/2, OR 1/4 TABLET AT A TIME; 1/4 TABLET WITH A PAIN PILL UP TO 1.25 TO 1.5 TABLETS TOTAL PER D
     Route: 048
     Dates: start: 20181212, end: 201812
  4. NORCO [Concomitant]
     Active Substance: ACETAMINOPHEN\HYDROCODONE BITARTRATE
  5. CLONAZEPAM. [Suspect]
     Active Substance: CLONAZEPAM
     Indication: ANXIETY
  6. SPIRIVA [Concomitant]
     Active Substance: TIOTROPIUM BROMIDE MONOHYDRATE
     Indication: CHRONIC OBSTRUCTIVE PULMONARY DISEASE
  7. ADVAIR HFA [Concomitant]
     Active Substance: FLUTICASONE PROPIONATE\SALMETEROL XINAFOATE
     Indication: CHRONIC OBSTRUCTIVE PULMONARY DISEASE

REACTIONS (8)
  - Nausea [Recovered/Resolved]
  - Tooth loss [Recovered/Resolved]
  - Product use in unapproved indication [Recovered/Resolved]
  - Pain in jaw [Recovered/Resolved]
  - Abdominal discomfort [Recovered/Resolved]
  - Headache [Recovered/Resolved]
  - Product substitution issue [Recovered/Resolved]
  - Hypophagia [Recovered/Resolved]

NARRATIVE: CASE EVENT DATE: 201812
